FAERS Safety Report 14659247 (Version 1)
Quarter: 2018Q1

REPORT INFORMATION
  Report Type: Report from Study
  Country: None (occurrence: US)
  Receive Date: 20180320
  Receipt Date: 20180320
  Transmission Date: 20180509
  Serious: Yes (Other)
  Sender: FDA-Public Use
  Company Number: US-BAUSCH-BL-2018-002766

PATIENT
  Sex: Male
  Weight: 83.99 kg

DRUGS (1)
  1. XIFAXAN [Suspect]
     Active Substance: RIFAXIMIN
     Indication: PRODUCT USED FOR UNKNOWN INDICATION
     Route: 048

REACTIONS (5)
  - Terminal state [Unknown]
  - Treatment noncompliance [Unknown]
  - Hepatic cirrhosis [Unknown]
  - Hepatic cancer [Unknown]
  - Malaise [Unknown]
